FAERS Safety Report 5505561-7 (Version None)
Quarter: 2007Q4

REPORT INFORMATION
  Report Type: 
  Country: None (occurrence: None)
  Receive Date: 20071102
  Receipt Date: 20071023
  Transmission Date: 20080405
  Serious: Yes (Life-Threatening, Other)
  Sender: FDA-Public Use
  Company Number: GB-PFIZER INC-2007083015

PATIENT
  Sex: Female
  Weight: 62 kg

DRUGS (15)
  1. KETALAR [Suspect]
     Indication: PAIN
     Dosage: TEXT:4 MG/ML-FREQ:1-6 ML/HOUR INFUSION
     Route: 042
     Dates: start: 20070921, end: 20070928
  2. NORETHISTERONE TABLET [Suspect]
     Route: 048
  3. VORICONAZOLE [Suspect]
     Route: 048
  4. ACETAMINOPHEN [Suspect]
     Route: 042
  5. CASPOFUNGIN [Suspect]
     Dosage: DAILY DOSE:70MG-TEXT:70 MG DAIILY
     Route: 042
  6. CYCLOSPORINE [Suspect]
  7. ONDANSETRON [Suspect]
     Route: 042
  8. CHLORPHENIRAMINE MALEATE [Suspect]
     Route: 042
  9. OMEPRAZOLE [Suspect]
  10. TAZOCIN [Suspect]
     Route: 042
  11. ACYCLOVIR [Suspect]
  12. ALLOPURINOL [Suspect]
     Dosage: DAILY DOSE:300MG-TEXT:300 MG DAILY
     Route: 048
  13. MORPHINE [Suspect]
     Dosage: FREQ:CONTIUES INTRAVENOUS INFUSION
     Route: 042
  14. TOPOSAR [Suspect]
     Route: 042
     Dates: start: 20070915, end: 20070915
  15. TPN [Concomitant]

REACTIONS (4)
  - DILATATION INTRAHEPATIC DUCT ACQUIRED [None]
  - HEPATOTOXICITY [None]
  - LIVER FUNCTION TEST ABNORMAL [None]
  - VENOOCCLUSIVE DISEASE [None]
